FAERS Safety Report 8802227 (Version 1)
Quarter: 2012Q4

REPORT INFORMATION
  Report Type: 
  Country: US (occurrence: US)
  Receive Date: 20120921
  Receipt Date: 20120921
  Transmission Date: 20130627
  Serious: Yes (Other)
  Sender: FDA-Public Use
  Company Number: US-ASTRAZENECA-2012SE71434

PATIENT
  Age: 55 Year
  Sex: Female
  Weight: 70.3 kg

DRUGS (6)
  1. SEROQUEL XR [Suspect]
     Indication: SLEEP DISORDER
     Route: 048
     Dates: start: 2011
  2. METOPROLOL TARTRATE [Concomitant]
     Indication: BLOOD PRESSURE ABNORMAL
     Dosage: 25-50 MG DAILY
     Route: 048
  3. BUPROPION HCL [Concomitant]
     Indication: DEPRESSION
     Route: 048
  4. LORAZEPAM [Concomitant]
     Indication: ANXIETY
     Dosage: 0.5 - 1 MG BID PRN
     Route: 048
  5. BENICAR [Concomitant]
     Indication: BLOOD PRESSURE ABNORMAL
     Route: 048
  6. TRILIPIX [Concomitant]
     Indication: BLOOD CHOLESTEROL ABNORMAL
     Route: 048

REACTIONS (3)
  - Nerve compression [Unknown]
  - Back pain [Unknown]
  - Off label use [Unknown]
